FAERS Safety Report 16877828 (Version 1)
Quarter: 2019Q4

REPORT INFORMATION
  Report Type: Spontaneous
  Country: US (occurrence: US)
  Receive Date: 20191002
  Receipt Date: 20191002
  Transmission Date: 20200122
  Serious: Yes (Other)
  Sender: FDA-Public Use
  Company Number: US-INCYTE CORPORATION-2019IN009882

PATIENT

DRUGS (1)
  1. JAKAFI [Suspect]
     Active Substance: RUXOLITINIB
     Indication: MYELODYSPLASTIC SYNDROME
     Dosage: 10 MILLIGRAM, BID
     Route: 048
     Dates: start: 20190529, end: 20191001

REACTIONS (3)
  - Internal haemorrhage [Recovering/Resolving]
  - Off label use [Unknown]
  - Leukaemia [Recovering/Resolving]

NARRATIVE: CASE EVENT DATE: 20190529
